FAERS Safety Report 20862166 (Version 7)
Quarter: 2023Q1

REPORT INFORMATION
  Report Type: Spontaneous
  Country: US (occurrence: US)
  Receive Date: 20220523
  Receipt Date: 20230217
  Transmission Date: 20230418
  Serious: No
  Sender: FDA-Public Use
  Company Number: US-BRISTOL-MYERS SQUIBB COMPANY-2022-013997

PATIENT
  Age: 82 Year
  Sex: Female

DRUGS (2)
  1. POMALYST [Suspect]
     Active Substance: POMALIDOMIDE
     Indication: Laboratory test abnormal
     Dosage: FREQUENCY : TAKE 1 CAPSULE BY  MOUTH EVERY DAY  FOR 14 DAYS OUT  OF A 28 DAY CYCLE.
     Route: 048
  2. POMALYST [Suspect]
     Active Substance: POMALIDOMIDE
     Dosage: FREQUENCY : TAKE 1 CAPSULE BY  MOUTH EVERY DAY  FOR 14 DAYS OUT  OF A 28 DAY CYCLE.?FREQUENCY: TAKE
     Route: 048
     Dates: start: 20200127

REACTIONS (6)
  - Fatigue [Unknown]
  - Muscle spasms [Unknown]
  - Back pain [Unknown]
  - Malaise [Unknown]
  - Intentional product use issue [Unknown]
  - Muscle twitching [Unknown]
